FAERS Safety Report 7117387-1 (Version None)
Quarter: 2010Q4

REPORT INFORMATION
  Report Type: 
  Country: None (occurrence: None)
  Receive Date: 20101122
  Receipt Date: 20101115
  Transmission Date: 20110411
  Serious: Yes (Other)
  Sender: FDA-Public Use
  Company Number: PE-PFIZER INC-2010153505

PATIENT
  Sex: Female

DRUGS (2)
  1. CELEBREX [Suspect]
     Dosage: UNK, TWICE DAILY
  2. RIVOTRIL [Concomitant]
     Dosage: UNK, AS NEEDED

REACTIONS (3)
  - FATIGUE [None]
  - HENOCH-SCHONLEIN PURPURA [None]
  - MALAISE [None]
